FAERS Safety Report 24580203 (Version 1)
Quarter: 2024Q4

REPORT INFORMATION
  Report Type: Report from Study
  Country: US (occurrence: US)
  Receive Date: 20241105
  Receipt Date: 20241105
  Transmission Date: 20250115
  Serious: Yes (Hospitalization)
  Sender: SANOFI AVENTIS
  Company Number: US-SA-SAC00000000504147

PATIENT
  Age: 44 Year
  Sex: Male
  Weight: 65 kg

DRUGS (47)
  1. ISATUXIMAB-IRFC [Suspect]
     Active Substance: ISATUXIMAB-IRFC
     Indication: Plasma cell myeloma refractory
     Dosage: 600 MG, QW
     Route: 065
     Dates: start: 20200924, end: 20210924
  2. ISATUXIMAB-IRFC [Suspect]
     Active Substance: ISATUXIMAB-IRFC
     Dosage: 600 MG, 1X
     Route: 065
     Dates: start: 20210408, end: 20210408
  3. ISATUXIMAB-IRFC [Suspect]
     Active Substance: ISATUXIMAB-IRFC
     Dosage: 600 MG, 1X
     Route: 065
     Dates: start: 20210520, end: 20210520
  4. ISATUXIMAB-IRFC [Suspect]
     Active Substance: ISATUXIMAB-IRFC
     Dosage: 600 MG, BIW
     Route: 065
     Dates: start: 20210906, end: 20210906
  5. ISATUXIMAB-IRFC [Suspect]
     Active Substance: ISATUXIMAB-IRFC
     Dosage: 600 MG, BIW
     Route: 065
     Dates: start: 20210908, end: 20210908
  6. POMALIDOMIDE [Suspect]
     Active Substance: POMALIDOMIDE
     Indication: Plasma cell myeloma refractory
     Dosage: 3 MG, QD (FREQUENCY DAYS 1-21 OF 28 DAY CYCLE)
     Route: 065
     Dates: start: 20200924, end: 20200924
  7. POMALIDOMIDE [Suspect]
     Active Substance: POMALIDOMIDE
     Dosage: 2 MG, QD
     Route: 065
     Dates: start: 20210114, end: 20210203
  8. POMALIDOMIDE [Suspect]
     Active Substance: POMALIDOMIDE
     Dosage: 2 MG, QD
     Route: 065
     Dates: start: 20210421, end: 20210421
  9. POMALIDOMIDE [Suspect]
     Active Substance: POMALIDOMIDE
     Dosage: 2 MG, QD
     Route: 065
     Dates: start: 20210520, end: 20210520
  10. POMALIDOMIDE [Suspect]
     Active Substance: POMALIDOMIDE
     Dosage: 2 MG, QD
     Route: 065
     Dates: start: 20210901, end: 20210901
  11. POMALIDOMIDE [Suspect]
     Active Substance: POMALIDOMIDE
     Dosage: 2 MG
     Route: 065
     Dates: start: 20210909, end: 20210930
  12. DEXAMETHASONE [Suspect]
     Active Substance: DEXAMETHASONE
     Indication: Plasma cell myeloma refractory
     Dosage: 40 MG, 1X
     Route: 065
     Dates: start: 20200924, end: 20200924
  13. DEXAMETHASONE [Suspect]
     Active Substance: DEXAMETHASONE
     Dosage: 3 MG, 1X
     Route: 065
     Dates: start: 20210325, end: 20210325
  14. DEXAMETHASONE [Suspect]
     Active Substance: DEXAMETHASONE
     Dosage: 40 MG, QW
     Route: 065
     Dates: start: 20210422, end: 20210422
  15. DEXAMETHASONE [Suspect]
     Active Substance: DEXAMETHASONE
     Dosage: 40 MG
     Route: 065
     Dates: start: 20210520, end: 20210520
  16. DEXAMETHASONE [Suspect]
     Active Substance: DEXAMETHASONE
     Dosage: 40 MG, 1X
     Dates: start: 20210812, end: 20210812
  17. DEXAMETHASONE [Suspect]
     Active Substance: DEXAMETHASONE
     Dosage: 4 MG
     Route: 065
     Dates: start: 20210916, end: 20210916
  18. NORCO [Concomitant]
     Active Substance: ACETAMINOPHEN\HYDROCODONE BITARTRATE
     Dosage: UNK UNK, PRN
     Route: 065
     Dates: start: 20160919
  19. CIPROFLOXACIN [Concomitant]
     Active Substance: CIPROFLOXACIN
     Indication: Infection
     Dosage: UNK UNK, PRN
     Route: 065
     Dates: start: 20200818
  20. DOXYCYCLINE [Concomitant]
     Active Substance: DOXYCYCLINE
     Indication: Infection
     Dosage: UNK UNK, PRN
     Route: 065
     Dates: start: 20200521
  21. DOXYCYCLINE [Concomitant]
     Active Substance: DOXYCYCLINE
     Dosage: UNK
     Route: 065
     Dates: start: 20210527
  22. ACYCLOVIR [Concomitant]
     Active Substance: ACYCLOVIR
     Dosage: UNK UNK, PRN
     Route: 065
     Dates: start: 20151215
  23. SILDENAFIL [Concomitant]
     Active Substance: SILDENAFIL
     Dosage: UNK UNK, PRN
     Route: 065
     Dates: start: 20201001
  24. DIPHENHYDRAMINE [Concomitant]
     Active Substance: DIPHENHYDRAMINE
     Indication: Chemotherapy side effect prophylaxis
     Dosage: UNK UNK, QCY
     Route: 065
     Dates: start: 20170421
  25. ACETAMINOPHEN\HYDROCODONE [Concomitant]
     Active Substance: ACETAMINOPHEN\HYDROCODONE
     Indication: Pain
     Dosage: UNK UNK, PRN
     Route: 065
     Dates: start: 20160919
  26. MEPERIDINE HYDROCHLORIDE [Concomitant]
     Active Substance: MEPERIDINE HYDROCHLORIDE
     Indication: Hypersensitivity
     Dosage: UNK UNK, PRN
     Route: 065
     Dates: start: 20200309
  27. SODIUM CHLORIDE [Concomitant]
     Active Substance: SODIUM CHLORIDE
     Indication: Chemotherapy side effect prophylaxis
     Dosage: UNK UNK, QCY
     Route: 040
     Dates: start: 20170306
  28. SODIUM CHLORIDE [Concomitant]
     Active Substance: SODIUM CHLORIDE
     Dosage: UNK UNK, QCY
     Route: 065
     Dates: start: 20170421
  29. SODIUM CHLORIDE [Concomitant]
     Active Substance: SODIUM CHLORIDE
     Dosage: UNK UNK, QCY
     Route: 040
     Dates: start: 20200924
  30. ASPIRIN [Concomitant]
     Active Substance: ASPIRIN
     Indication: Cardiovascular event prophylaxis
     Dosage: UNK
     Route: 065
     Dates: start: 20160919
  31. ASPIRIN [Concomitant]
     Active Substance: ASPIRIN
     Dosage: UNK
     Route: 065
     Dates: start: 20170302
  32. CYANOCOBALAMIN\FOLIC ACID\PYRIDOXINE [Concomitant]
     Active Substance: CYANOCOBALAMIN\FOLIC ACID\PYRIDOXINE
     Indication: Blood folate decreased
     Dosage: UNK
     Route: 065
     Dates: start: 20210213
  33. FAMOTIDINE [Concomitant]
     Active Substance: FAMOTIDINE
     Indication: Premedication
     Dosage: UNK
     Route: 065
     Dates: start: 20200309
  34. ASCORBIC ACID [Concomitant]
     Active Substance: ASCORBIC ACID
     Dosage: UNK
     Route: 065
  35. ONDANSETRON [Concomitant]
     Active Substance: ONDANSETRON
     Indication: Nausea
     Dosage: UNK UNK, PRN
     Dates: start: 20210527
  36. CEFTRIAXONE [Concomitant]
     Active Substance: CEFTRIAXONE
     Dosage: 2 G
     Dates: start: 20210907, end: 20210907
  37. EPINEPHRINE [Concomitant]
     Active Substance: EPINEPHRINE
     Indication: Anaphylactic reaction
     Dosage: UNK
     Dates: start: 20210907, end: 20210907
  38. IOHEXOL [Concomitant]
     Active Substance: IOHEXOL
     Dosage: UNK
     Route: 048
     Dates: start: 20211021, end: 20211021
  39. MAGNESIUM OXIDE [Concomitant]
     Active Substance: MAGNESIUM OXIDE
     Indication: Nutritional supplementation
     Dosage: UNK
     Dates: start: 20210912, end: 20210914
  40. MELATONIN [Concomitant]
     Active Substance: MELATONIN
     Indication: Nutritional supplementation
     Dosage: UNK
     Dates: start: 20210908, end: 20210921
  41. METHYLPREDNISOLONE [Concomitant]
     Active Substance: METHYLPREDNISOLONE
     Dosage: UNK
     Dates: start: 20210907, end: 20210907
  42. NYSTATIN [Concomitant]
     Active Substance: NYSTATIN
     Dosage: 100,000 UNIT/ML PRN
     Dates: start: 20210909, end: 20210912
  43. PROMETHAZINE [Concomitant]
     Active Substance: PROMETHAZINE HYDROCHLORIDE
     Dosage: 25 MG, PRN
     Dates: start: 20210908, end: 20210913
  44. VANCOMYCIN [Concomitant]
     Active Substance: VANCOMYCIN
     Indication: COVID-19
     Dosage: UNK UNK, PRN
     Dates: start: 20210908, end: 20210908
  45. ZINC SULFATE [Concomitant]
     Active Substance: ZINC SULFATE
     Indication: Nutritional supplementation
     Dosage: UNK
  46. MAGNESIUM SULFATE [Concomitant]
     Active Substance: MAGNESIUM SULFATE
     Dosage: UNK UNK, PRN
     Dates: start: 20210907, end: 20210907
  47. ONDANSETRON HYDROCHLORIDE [Concomitant]
     Active Substance: ONDANSETRON HYDROCHLORIDE
     Dosage: 4 MG/2ML INJECTION
     Dates: start: 20210907, end: 20210907

REACTIONS (11)
  - COVID-19 [Recovered/Resolved]
  - Pseudomonas peritonitis [Recovered/Resolved]
  - COVID-19 [Recovered/Resolved]
  - Paraesthesia [Recovered/Resolved]
  - Thrombocytopenia [Recovered/Resolved]
  - Hypokalaemia [Recovered/Resolved]
  - Anaemia [Recovered/Resolved]
  - Hypotension [Recovered/Resolved]
  - Back pain [Recovered/Resolved]
  - Anaemia [Recovered/Resolved]
  - Delirium [Recovered/Resolved]

NARRATIVE: CASE EVENT DATE: 20210421
